FAERS Safety Report 17204660 (Version 3)
Quarter: 2022Q2

REPORT INFORMATION
  Report Type: Spontaneous
  Country: US (occurrence: None)
  Receive Date: 20191226
  Receipt Date: 20220413
  Transmission Date: 20220721
  Serious: Yes (Other)
  Sender: FDA-Public Use
  Company Number: 2019SF86027

PATIENT
  Age: 626 Month
  Sex: Female

DRUGS (66)
  1. NEXIUM [Suspect]
     Active Substance: ESOMEPRAZOLE MAGNESIUM
     Route: 048
     Dates: start: 201201, end: 201912
  2. PRILOSEC [Suspect]
     Active Substance: OMEPRAZOLE MAGNESIUM
     Indication: Gastrooesophageal reflux disease
     Route: 048
     Dates: start: 201201, end: 201912
  3. PRILOSEC [Suspect]
     Active Substance: OMEPRAZOLE MAGNESIUM
     Indication: Gastrooesophageal reflux disease
     Route: 048
     Dates: start: 201201, end: 201912
  4. PRILOSEC [Suspect]
     Active Substance: OMEPRAZOLE MAGNESIUM
     Indication: Dyspepsia
     Route: 048
     Dates: start: 201201, end: 201912
  5. PRILOSEC [Suspect]
     Active Substance: OMEPRAZOLE MAGNESIUM
     Indication: Gastrooesophageal reflux disease
     Dosage: GENERIC
     Route: 065
     Dates: start: 20190327
  6. PRILOSEC [Suspect]
     Active Substance: OMEPRAZOLE MAGNESIUM
     Indication: Gastrooesophageal reflux disease
     Dosage: GENERIC
     Route: 065
     Dates: start: 20190327
  7. PRILOSEC [Suspect]
     Active Substance: OMEPRAZOLE MAGNESIUM
     Indication: Dyspepsia
     Dosage: GENERIC
     Route: 065
     Dates: start: 20190327
  8. PRILOSEC [Suspect]
     Active Substance: OMEPRAZOLE MAGNESIUM
     Indication: Gastrooesophageal reflux disease
     Dosage: GENERIC
     Route: 065
     Dates: start: 20190808
  9. PRILOSEC [Suspect]
     Active Substance: OMEPRAZOLE MAGNESIUM
     Indication: Gastrooesophageal reflux disease
     Dosage: GENERIC
     Route: 065
     Dates: start: 20190808
  10. PRILOSEC [Suspect]
     Active Substance: OMEPRAZOLE MAGNESIUM
     Indication: Dyspepsia
     Dosage: GENERIC
     Route: 065
     Dates: start: 20190808
  11. PRILOSEC OTC [Suspect]
     Active Substance: OMEPRAZOLE MAGNESIUM
     Indication: Gastrooesophageal reflux disease
     Route: 048
     Dates: start: 201201, end: 201912
  12. PRILOSEC OTC [Suspect]
     Active Substance: OMEPRAZOLE MAGNESIUM
     Indication: Gastrooesophageal reflux disease
     Route: 048
     Dates: start: 201201, end: 201912
  13. PRILOSEC OTC [Suspect]
     Active Substance: OMEPRAZOLE MAGNESIUM
     Indication: Dyspepsia
     Route: 048
     Dates: start: 201201, end: 201912
  14. DEXILANT [Suspect]
     Active Substance: DEXLANSOPRAZOLE
     Indication: Gastrooesophageal reflux disease
     Route: 065
     Dates: start: 201201, end: 201912
  15. DEXILANT [Suspect]
     Active Substance: DEXLANSOPRAZOLE
     Indication: Gastrooesophageal reflux disease
     Route: 065
     Dates: start: 201201, end: 201912
  16. DEXILANT [Suspect]
     Active Substance: DEXLANSOPRAZOLE
     Indication: Dyspepsia
     Route: 065
     Dates: start: 201201, end: 201912
  17. PROTONIX [Suspect]
     Active Substance: PANTOPRAZOLE SODIUM
     Indication: Gastrooesophageal reflux disease
     Route: 065
     Dates: start: 201201, end: 201912
  18. PROTONIX [Suspect]
     Active Substance: PANTOPRAZOLE SODIUM
     Indication: Gastrooesophageal reflux disease
     Route: 065
     Dates: start: 201201, end: 201912
  19. PROTONIX [Suspect]
     Active Substance: PANTOPRAZOLE SODIUM
     Indication: Dyspepsia
     Route: 065
     Dates: start: 201201, end: 201912
  20. PROTONIX [Suspect]
     Active Substance: PANTOPRAZOLE SODIUM
     Indication: Gastrooesophageal reflux disease
     Dosage: GENERIC
     Route: 065
     Dates: start: 20180614
  21. PROTONIX [Suspect]
     Active Substance: PANTOPRAZOLE SODIUM
     Indication: Gastrooesophageal reflux disease
     Dosage: GENERIC
     Route: 065
     Dates: start: 20180614
  22. PROTONIX [Suspect]
     Active Substance: PANTOPRAZOLE SODIUM
     Indication: Dyspepsia
     Dosage: GENERIC
     Route: 065
     Dates: start: 20180614
  23. PROTONIX [Suspect]
     Active Substance: PANTOPRAZOLE SODIUM
     Indication: Gastrooesophageal reflux disease
     Dosage: GENERIC
     Route: 065
     Dates: start: 20130201
  24. PROTONIX [Suspect]
     Active Substance: PANTOPRAZOLE SODIUM
     Indication: Gastrooesophageal reflux disease
     Dosage: GENERIC
     Route: 065
     Dates: start: 20130201
  25. PROTONIX [Suspect]
     Active Substance: PANTOPRAZOLE SODIUM
     Indication: Dyspepsia
     Dosage: GENERIC
     Route: 065
     Dates: start: 20130201
  26. PROTONIX [Suspect]
     Active Substance: PANTOPRAZOLE SODIUM
     Indication: Gastrooesophageal reflux disease
     Route: 065
     Dates: start: 20200505
  27. PROTONIX [Suspect]
     Active Substance: PANTOPRAZOLE SODIUM
     Indication: Gastrooesophageal reflux disease
     Route: 065
     Dates: start: 20200505
  28. PROTONIX [Suspect]
     Active Substance: PANTOPRAZOLE SODIUM
     Indication: Dyspepsia
     Route: 065
     Dates: start: 20200505
  29. PROTONIX [Suspect]
     Active Substance: PANTOPRAZOLE SODIUM
     Indication: Gastrooesophageal reflux disease
     Route: 065
     Dates: start: 20120910
  30. PROTONIX [Suspect]
     Active Substance: PANTOPRAZOLE SODIUM
     Indication: Gastrooesophageal reflux disease
     Route: 065
     Dates: start: 20120910
  31. PROTONIX [Suspect]
     Active Substance: PANTOPRAZOLE SODIUM
     Indication: Dyspepsia
     Route: 065
     Dates: start: 20120910
  32. HYDROCHLOROTHIAZIDE [Concomitant]
     Active Substance: HYDROCHLOROTHIAZIDE
  33. AZITHROMYCIN [Concomitant]
     Active Substance: AZITHROMYCIN
  34. LEVOFLOXACIN [Concomitant]
     Active Substance: LEVOFLOXACIN
  35. LISINOPRIL [Concomitant]
     Active Substance: LISINOPRIL
  36. DICLOFENAC [Concomitant]
     Active Substance: DICLOFENAC
     Indication: Back pain
  37. AMOXICILLIN [Concomitant]
     Active Substance: AMOXICILLIN
  38. ROSUVASTATIN [Concomitant]
     Active Substance: ROSUVASTATIN
  39. CHROMIUM/VITAMIN B12 NOS/NICOTINAMIDE/PHOSPHORUS/VITAMIN K NOS/DEXTRIN [Concomitant]
  40. METFORMIN [Concomitant]
     Active Substance: METFORMIN HYDROCHLORIDE
     Dates: start: 20160205
  41. GLIMEPIRIDE [Concomitant]
     Active Substance: GLIMEPIRIDE
     Dates: start: 20160216
  42. MYRBETRIQ [Concomitant]
     Active Substance: MIRABEGRON
     Indication: Incontinence
     Dates: start: 20160216
  43. PRAVASTATIN [Concomitant]
     Active Substance: PRAVASTATIN
     Dates: start: 20160222
  44. ALBUTEROL [Concomitant]
     Active Substance: ALBUTEROL
     Dates: start: 20160222
  45. ACETAMINOPHEN\OXYCODONE HYDROCHLORIDE [Concomitant]
     Active Substance: ACETAMINOPHEN\OXYCODONE HYDROCHLORIDE
     Dates: start: 20160222
  46. HYDROXYZINE PAMOATE [Concomitant]
     Active Substance: HYDROXYZINE PAMOATE
     Indication: Anxiety
     Dates: start: 20160222
  47. TRAZODONE [Concomitant]
     Active Substance: TRAZODONE HYDROCHLORIDE
     Indication: Sleep disorder
     Dates: start: 20160222
  48. GABAPENTIN [Concomitant]
     Active Substance: GABAPENTIN
  49. PROPRANOLOL HYDROCHLORIDE/ALPRAZOLAM [Concomitant]
  50. LEVEMIR [Concomitant]
     Active Substance: INSULIN DETEMIR
  51. SUMATRIPTAN [Concomitant]
     Active Substance: SUMATRIPTAN
  52. JANUVIA [Concomitant]
     Active Substance: SITAGLIPTIN PHOSPHATE
  53. PROVENTIL [Concomitant]
     Active Substance: ALBUTEROL
  54. NOVOLIN NOS [Concomitant]
     Active Substance: INSULIN HUMAN
  55. HUMULIN NOS [Concomitant]
     Active Substance: INSULIN HUMAN
  56. CEPHALEXIN [Concomitant]
     Active Substance: CEPHALEXIN
  57. DULOXETINE [Concomitant]
     Active Substance: DULOXETINE
  58. BACLOFEN [Concomitant]
     Active Substance: BACLOFEN
  59. SEROQUEL [Concomitant]
     Active Substance: QUETIAPINE FUMARATE
  60. VISTARIL [Concomitant]
     Active Substance: HYDROXYZINE PAMOATE
  61. AMITRIPTYLINE [Concomitant]
     Active Substance: AMITRIPTYLINE
  62. ABILIFY [Concomitant]
     Active Substance: ARIPIPRAZOLE
  63. CYMBALTA [Concomitant]
     Active Substance: DULOXETINE HYDROCHLORIDE
  64. NEURONTIN [Concomitant]
     Active Substance: GABAPENTIN
  65. REMERON [Concomitant]
     Active Substance: MIRTAZAPINE
  66. PROVENTIL [Concomitant]
     Active Substance: ALBUTEROL

REACTIONS (2)
  - Chronic kidney disease [Not Recovered/Not Resolved]
  - End stage renal disease [Unknown]

NARRATIVE: CASE EVENT DATE: 20170701
